FAERS Safety Report 12582780 (Version 1)
Quarter: 2016Q3

REPORT INFORMATION
  Report Type: Spontaneous
  Country: US (occurrence: None)
  Receive Date: 20160721
  Receipt Date: 20160721
  Transmission Date: 20161109
  Serious: Yes (Hospitalization)
  Sender: FDA-Public Use
  Company Number: None

PATIENT
  Age: 70 Year
  Sex: Female
  Weight: 122.9 kg

DRUGS (9)
  1. INSULIN ASPART (NOVOLOG) [Concomitant]
  2. LISINOPRIL (PRINIVIL, ZESTRIL) [Concomitant]
  3. PRAVACHOL [Concomitant]
     Active Substance: PRAVASTATIN SODIUM
  4. BREO ELLIPTA [Concomitant]
     Active Substance: FLUTICASONE FUROATE\VILANTEROL TRIFENATATE
  5. CYMBALTA [Concomitant]
     Active Substance: DULOXETINE HYDROCHLORIDE
  6. TOUJEO [Concomitant]
     Active Substance: INSULIN GLARGINE
  7. TRAMADOL (ULTRAM) [Concomitant]
  8. INVOKAMET [Concomitant]
     Active Substance: CANAGLIFLOZIN\METFORMIN HYDROCHLORIDE
  9. ELIQUIS [Suspect]
     Active Substance: APIXABAN
     Indication: PULMONARY EMBOLISM
     Route: 048
     Dates: start: 20160415, end: 20160716

REACTIONS (6)
  - Splenic artery thrombosis [None]
  - Multiple injuries [None]
  - Dyspnoea [None]
  - Granuloma [None]
  - Malaise [None]
  - Pulmonary embolism [None]

NARRATIVE: CASE EVENT DATE: 20160716
